FAERS Safety Report 15972557 (Version 1)
Quarter: 2019Q1

REPORT INFORMATION
  Report Type: Report from Study
  Country: ES (occurrence: ES)
  Receive Date: 20190216
  Receipt Date: 20190216
  Transmission Date: 20190418
  Serious: Yes (Hospitalization)
  Sender: FDA-Public Use
  Company Number: ES-ACCORD-096992

PATIENT
  Age: 92 Year
  Sex: Female

DRUGS (11)
  1. FUROSEMIDE. [Suspect]
     Active Substance: FUROSEMIDE
     Indication: PRODUCT USED FOR UNKNOWN INDICATION
     Dosage: 1 Y 1/2-1-0
     Route: 048
     Dates: start: 20170422, end: 20170505
  2. SINTROM [Concomitant]
     Active Substance: ACENOCOUMAROL
     Dosage: SP
     Route: 048
     Dates: start: 20150101
  3. TRANKIMAZIN [Concomitant]
     Active Substance: ALPRAZOLAM
     Dosage: 0-1/2-1/2
     Route: 048
     Dates: start: 20150101
  4. QUETIAPINE/QUETIAPINE FUMARATE [Concomitant]
     Dosage: 0-1-2
     Route: 048
     Dates: start: 20150101
  5. MIRTAZAPINE. [Concomitant]
     Active Substance: MIRTAZAPINE
     Dosage: 1/2 CP IN DINNER
     Route: 048
     Dates: start: 20150101
  6. AMLODIPINE [Concomitant]
     Active Substance: AMLODIPINE BESYLATE
     Dosage: 1-0-0
     Route: 048
     Dates: start: 20150101
  7. OMEPRAZOLE. [Concomitant]
     Active Substance: OMEPRAZOLE
     Dosage: 1 CP
     Route: 048
  8. CITALOPRAM [Concomitant]
     Active Substance: CITALOPRAM HYDROBROMIDE
     Dosage: 1-0-0
     Route: 048
     Dates: start: 20150101
  9. MEMANTINE/MEMANTINE HYDROCHLORIDE [Concomitant]
     Dosage: 1-0-0
     Route: 048
     Dates: start: 20150101
  10. LEVOTHYROXINE. [Concomitant]
     Active Substance: LEVOTHYROXINE
     Dosage: 1-0-0
     Route: 048
     Dates: start: 20150101
  11. LEVOFLOXACIN. [Concomitant]
     Active Substance: LEVOFLOXACIN
     Dosage: 1 CP DIA
     Route: 048
     Dates: start: 20170502

REACTIONS (1)
  - Hypokalaemia [Recovered/Resolved]

NARRATIVE: CASE EVENT DATE: 20170505
